FAERS Safety Report 15440294 (Version 1)
Quarter: 2018Q3

REPORT INFORMATION
  Report Type: Report from Study
  Country: BR (occurrence: BR)
  Receive Date: 20180928
  Receipt Date: 20180928
  Transmission Date: 20181010
  Serious: Yes (Death, Hospitalization, Other)
  Sender: FDA-Public Use
  Company Number: PHHY2018BR109949

PATIENT
  Sex: Female
  Weight: 87 kg

DRUGS (2)
  1. ACLASTA [Suspect]
     Active Substance: ZOLEDRONIC ACID
     Indication: OSTEOPOROSIS
     Dosage: 1 DF (5MG/100ML), Q12MO
     Route: 042
     Dates: start: 2018
  2. CYCLOPHOSPHAMIDE. [Concomitant]
     Active Substance: CYCLOPHOSPHAMIDE
     Indication: PRODUCT USED FOR UNKNOWN INDICATION
     Dosage: UNK
     Route: 065

REACTIONS (9)
  - Gastric haemorrhage [Unknown]
  - Concomitant disease aggravated [Unknown]
  - Porphyria acute [Unknown]
  - Osteopenia [Unknown]
  - Aneurysm ruptured [Fatal]
  - Aneurysm [Fatal]
  - Spinal compression fracture [Unknown]
  - Polyarteritis nodosa [Fatal]
  - Haemorrhage [Unknown]
